FAERS Safety Report 6190641-6 (Version None)
Quarter: 2009Q2

REPORT INFORMATION
  Report Type: 
  Country: None (occurrence: None)
  Receive Date: 20090514
  Receipt Date: 20090508
  Transmission Date: 20091009
  Serious: Yes (Hospitalization, Other)
  Sender: FDA-Public Use
  Company Number: US-ABBOTT-09P-163-0572503-00

PATIENT
  Sex: Male
  Weight: 87.168 kg

DRUGS (19)
  1. HUMIRA [Suspect]
     Indication: CROHN'S DISEASE
     Route: 058
     Dates: start: 20080201, end: 20090301
  2. HUMIRA [Suspect]
     Indication: COLITIS ULCERATIVE
  3. PREDNISONE [Concomitant]
     Indication: CROHN'S DISEASE
     Route: 048
  4. PREDNISONE [Concomitant]
     Indication: COLITIS ULCERATIVE
  5. BISTOLIC [Concomitant]
     Indication: HYPERTENSION
     Route: 048
  6. SIMVASTATIN [Concomitant]
     Indication: BLOOD CHOLESTEROL INCREASED
     Route: 048
  7. AMLODIPINE [Concomitant]
     Indication: HYPERTENSION
     Route: 048
  8. FLOMAX [Concomitant]
     Indication: PROSTATOMEGALY
     Route: 048
  9. FOLIC ACID [Concomitant]
     Indication: MEDICAL DIET
     Route: 048
  10. PROPYLTHIOURACIL [Concomitant]
     Indication: HYPOTHYROIDISM
     Route: 048
  11. PLAVIX [Concomitant]
     Indication: ANTICOAGULANT THERAPY
     Route: 050
  12. LEXAPRO [Concomitant]
     Indication: DEPRESSION
     Route: 048
  13. XANAX XR [Concomitant]
     Indication: ANXIETY
     Route: 048
  14. XANAX [Concomitant]
     Indication: ANXIETY
  15. TRAMADOL [Concomitant]
     Indication: PAIN
  16. TYLENOL (CAPLET) [Concomitant]
     Indication: PAIN
     Route: 048
  17. VITAMIN D [Concomitant]
     Indication: MEDICAL DIET
     Route: 048
  18. CALCIUM W/VITAMIN D [Concomitant]
     Indication: MEDICAL DIET
     Route: 048
  19. VITAMIN B-12 [Concomitant]
     Indication: MEDICAL DIET
     Route: 048

REACTIONS (6)
  - ABDOMINAL PAIN [None]
  - AORTIC ANEURYSM [None]
  - BACK PAIN [None]
  - DRUG INEFFECTIVE [None]
  - FAECAL INCONTINENCE [None]
  - FLATULENCE [None]
